FAERS Safety Report 24112498 (Version 2)
Quarter: 2025Q4

REPORT INFORMATION
  Report Type: Spontaneous
  Country: US (occurrence: US)
  Receive Date: 20240719
  Receipt Date: 20251112
  Transmission Date: 20260117
  Serious: Yes (Hospitalization, Other)
  Sender: DR REDDYS
  Company Number: US-DRL-USA-LIT/USA/24/0010387

PATIENT
  Age: 38 Year
  Sex: Male

DRUGS (2)
  1. IBUPROFEN [Suspect]
     Active Substance: IBUPROFEN
     Indication: Pain management
     Dosage: LARGE, UNKNOWN QUANTITIES
     Route: 065
  2. ACETAMINOPHEN [Suspect]
     Active Substance: ACETAMINOPHEN
     Indication: Pain management
     Route: 065

REACTIONS (11)
  - Liver injury [Recovering/Resolving]
  - Renal tubular necrosis [Recovering/Resolving]
  - Mallory-Weiss syndrome [Recovering/Resolving]
  - Upper gastrointestinal haemorrhage [Recovering/Resolving]
  - Intentional overdose [Unknown]
  - Oesophagitis [Recovering/Resolving]
  - Haemodynamic instability [Recovering/Resolving]
  - Toxicity to various agents [Unknown]
  - Parvimonas micra infection [Recovered/Resolved]
  - Intentional product use issue [Recovering/Resolving]
  - Bacteraemia [Recovered/Resolved]
